FAERS Safety Report 8845884 (Version 2)
Quarter: 2013Q1

REPORT INFORMATION
  Report Type: Spontaneous
  Country: US (occurrence: US)
  Receive Date: 20121017
  Receipt Date: 20130128
  Transmission Date: 20140127
  Serious: No
  Sender: FDA-Public Use
  Company Number: US-009507513-1210USA005394

PATIENT
  Sex: Female
  Weight: 83.9 kg

DRUGS (3)
  1. MIRALAX [Suspect]
     Indication: COLON OPERATION
     Dosage: 17 GM, BID
     Route: 048
     Dates: start: 1999
  2. MIRALAX [Suspect]
     Indication: MEDICAL OBSERVATION
  3. MIRALAX [Suspect]
     Indication: CONSTIPATION

REACTIONS (3)
  - Overdose [Unknown]
  - No adverse event [Unknown]
  - Inappropriate schedule of drug administration [Unknown]
